FAERS Safety Report 14619895 (Version 1)
Quarter: 2018Q1

REPORT INFORMATION
  Report Type: Spontaneous
  Country: US (occurrence: US)
  Receive Date: 20180309
  Receipt Date: 20180309
  Transmission Date: 20180509
  Serious: Yes (Hospitalization, Other)
  Sender: FDA-Public Use
  Company Number: US-PFIZER INC-2018095490

PATIENT
  Age: 32 Year
  Sex: Male
  Weight: 83.91 kg

DRUGS (1)
  1. RAPAMUNE [Suspect]
     Active Substance: SIROLIMUS
     Indication: BONE MARROW TRANSPLANT REJECTION
     Dosage: 3.25 MG, 1X/DAY (0.5MG TABLET; TAKES 6.5 TABLETS ONCE A DAY BY MOUTH)
     Route: 048
     Dates: start: 201508

REACTIONS (3)
  - Product use in unapproved indication [Unknown]
  - Pneumonia [Recovered/Resolved]
  - Influenza [Recovered/Resolved]

NARRATIVE: CASE EVENT DATE: 201508
